FAERS Safety Report 12521038 (Version 4)
Quarter: 2016Q3

REPORT INFORMATION
  Report Type: Report from Study
  Country: US (occurrence: US)
  Receive Date: 20160701
  Receipt Date: 20160816
  Transmission Date: 20161109
  Serious: Yes (Death, Hospitalization, Other)
  Sender: FDA-Public Use
  Company Number: US-GILEAD-2016-0221335

PATIENT
  Age: 81 Year
  Sex: Female
  Weight: 44.1 kg

DRUGS (5)
  1. FLECAINIDE [Concomitant]
     Active Substance: FLECAINIDE
  2. METOPROLOL XL SANDOZ [Concomitant]
     Active Substance: METOPROLOL SUCCINATE
  3. WARFARIN [Concomitant]
     Active Substance: WARFARIN
  4. AMBRISENTAN [Suspect]
     Active Substance: AMBRISENTAN
     Indication: PULMONARY ARTERIAL HYPERTENSION
     Dosage: 5 MG, UNK
     Route: 048
     Dates: start: 20160512, end: 20160531
  5. OMEPRAZOLE. [Concomitant]
     Active Substance: OMEPRAZOLE

REACTIONS (8)
  - Death [Fatal]
  - Acute respiratory failure [Unknown]
  - Pleural effusion [Unknown]
  - Fluid overload [Unknown]
  - Sinus tachycardia [Unknown]
  - Respiratory acidosis [Unknown]
  - Pneumothorax [Unknown]
  - Hypotension [Unknown]

NARRATIVE: CASE EVENT DATE: 20160526
